FAERS Safety Report 25570352 (Version 1)
Quarter: 2025Q3

REPORT INFORMATION
  Report Type: Report from Study
  Country: US (occurrence: US)
  Receive Date: 20250717
  Receipt Date: 20250717
  Transmission Date: 20251021
  Serious: Yes (Other)
  Sender: JAZZ
  Company Number: US-JAZZ PHARMACEUTICALS-2025-US-003033

PATIENT
  Sex: Female

DRUGS (22)
  1. XYWAV [Suspect]
     Active Substance: CALCIUM OXYBATE\MAGNESIUM OXYBATE\POTASSIUM OXYBATE\SODIUM OXYBATE
     Indication: Narcolepsy
  2. XYWAV [Suspect]
     Active Substance: CALCIUM OXYBATE\MAGNESIUM OXYBATE\POTASSIUM OXYBATE\SODIUM OXYBATE
     Indication: Cataplexy
     Dosage: 3 GRAM, BID
  3. XYWAV [Suspect]
     Active Substance: CALCIUM OXYBATE\MAGNESIUM OXYBATE\POTASSIUM OXYBATE\SODIUM OXYBATE
     Dosage: 3.5 GRAM, BID
  4. BENZONATATE [Concomitant]
     Active Substance: BENZONATATE
  5. ALBUTEROL SULFATE [Concomitant]
     Active Substance: ALBUTEROL SULFATE
  6. AZITHROMYCIN [Concomitant]
     Active Substance: AZITHROMYCIN
  7. XYZAL [Concomitant]
     Active Substance: LEVOCETIRIZINE DIHYDROCHLORIDE
  8. AMLODIPINE BESYLATE [Concomitant]
     Active Substance: AMLODIPINE BESYLATE
  9. OLMESARTAN MEDOXOMIL [Concomitant]
     Active Substance: OLMESARTAN MEDOXOMIL
  10. TAMIFLU [Concomitant]
     Active Substance: OSELTAMIVIR PHOSPHATE
  11. EVENING PRIMROSE [Concomitant]
  12. DIETARY SUPPLEMENT [Concomitant]
     Active Substance: DIETARY SUPPLEMENT
  13. HERBALS [Concomitant]
     Active Substance: HERBALS
  14. NAPROXEN [Concomitant]
     Active Substance: NAPROXEN
  15. CYCLOBENZAPRINE [Concomitant]
     Active Substance: CYCLOBENZAPRINE
  16. CEFIXIME [Concomitant]
     Active Substance: CEFIXIME
  17. METHOCARBAMOL AL [Concomitant]
  18. IBUPROFEN [Concomitant]
     Active Substance: IBUPROFEN
  19. ALLEGRA ALLERGY [Concomitant]
     Active Substance: FEXOFENADINE HYDROCHLORIDE
     Dates: start: 20250325, end: 20250622
  20. TYLENOL [Concomitant]
     Active Substance: ACETAMINOPHEN
  21. DIPHENHYDRAMINE [Concomitant]
     Active Substance: DIPHENHYDRAMINE
  22. ACID REDUCER [CIMETIDINE] [Concomitant]

REACTIONS (10)
  - Anaphylactic reaction [Unknown]
  - Nasopharyngitis [Unknown]
  - Gastroenteritis viral [Recovering/Resolving]
  - Rib fracture [Unknown]
  - Glucose tolerance impaired [Unknown]
  - Weight increased [Unknown]
  - Dyspepsia [Unknown]
  - Muscle spasms [Unknown]
  - Paranoia [Unknown]
  - Intentional dose omission [Unknown]
